FAERS Safety Report 16591917 (Version 2)
Quarter: 2019Q3

REPORT INFORMATION
  Report Type: Report from Study
  Country: US (occurrence: US)
  Receive Date: 20190718
  Receipt Date: 20190806
  Transmission Date: 20191004
  Serious: No
  Sender: FDA-Public Use
  Company Number: US-HORIZON-VIM-0277-2019

PATIENT
  Age: 64 Year
  Sex: Female

DRUGS (2)
  1. VIMOVO [Suspect]
     Active Substance: ESOMEPRAZOLE MAGNESIUM\NAPROXEN
     Indication: PRODUCT USED FOR UNKNOWN INDICATION
  2. NATURE-THROID [Concomitant]
     Active Substance: THYROID, PORCINE

REACTIONS (1)
  - Drug ineffective [Not Recovered/Not Resolved]
